FAERS Safety Report 9774576 (Version 2)
Quarter: 2014Q1

REPORT INFORMATION
  Report Type: Report from Study
  Country: AU (occurrence: AU)
  Receive Date: 20131220
  Receipt Date: 20140310
  Transmission Date: 20141002
  Serious: Yes (Life-Threatening, Other)
  Sender: FDA-Public Use
  Company Number: AU-ABBVIE-13P-008-1181913-00

PATIENT
  Age: 59 Year
  Sex: Female

DRUGS (4)
  1. HUMIRA [Suspect]
     Indication: RHEUMATOID ARTHRITIS
     Route: 058
  2. SALAZOPYRIN [Concomitant]
     Indication: RHEUMATOID ARTHRITIS
     Route: 048
     Dates: start: 20100901, end: 20131120
  3. LEFLUNOMIDE [Concomitant]
     Indication: RHEUMATOID ARTHRITIS
     Route: 048
     Dates: start: 20091113, end: 20131120
  4. PREDNISONE [Concomitant]
     Indication: RHEUMATOID ARTHRITIS
     Dosage: 5-10 MG
     Route: 048
     Dates: start: 20081203

REACTIONS (2)
  - Brain mass [Unknown]
  - Lung neoplasm malignant [Not Recovered/Not Resolved]
